FAERS Safety Report 8525232-2 (Version None)
Quarter: 2012Q3

REPORT INFORMATION
  Report Type: 
  Country: None (occurrence: None)
  Receive Date: 20120720
  Receipt Date: 20120716
  Transmission Date: 20120928
  Serious: Yes (Hospitalization)
  Sender: FDA-Public Use
  Company Number: PHHY2012FR061844

PATIENT
  Age: 73 Year
  Sex: Female

DRUGS (4)
  1. CHLOROQUINE PHOSPHATE [Concomitant]
     Dosage: UNK UKN, UNK
     Dates: start: 20110101, end: 20110901
  2. CALCIUM CARBONATE [Concomitant]
     Dosage: UNK UKN, UNK
     Dates: start: 20110101, end: 20110801
  3. SOTALOL HCL [Concomitant]
     Dosage: UNK UKN, UNK
     Dates: start: 20110101
  4. ZOLEDRONOC ACID [Suspect]
     Dosage: UNK UKN, UNK
     Route: 042

REACTIONS (1)
  - INTESTINAL POLYP HAEMORRHAGE [None]
